FAERS Safety Report 6014664-2 (Version None)
Quarter: 2008Q4

REPORT INFORMATION
  Report Type: 
  Country: None (occurrence: None)
  Receive Date: 20081219
  Receipt Date: 20081028
  Transmission Date: 20090506
  Serious: No
  Sender: FDA-Public Use
  Company Number: A0753887A

PATIENT
  Age: 72 Year
  Sex: Male

DRUGS (4)
  1. AVODART [Suspect]
     Dosage: 1CAP PER DAY
     Route: 048
  2. TRICOR [Concomitant]
  3. UNKNOWN MEDICATION [Concomitant]
  4. UNKNOWN MEDICATION [Concomitant]

REACTIONS (1)
  - DIZZINESS [None]
